FAERS Safety Report 4364459-0 (Version None)
Quarter: 2004Q2

REPORT INFORMATION
  Report Type: 
  Country: None (occurrence: None)
  Receive Date: 20040525
  Receipt Date: 20040502
  Transmission Date: 20050107
  Serious: Yes (Death, Life-Threatening, Hospitalization, Other)
  Sender: FDA-Public Use
  Company Number: IN-GLAXOSMITHKLINE-B0331810A

PATIENT
  Age: 30 Year
  Sex: Female

DRUGS (7)
  1. FORTUM [Suspect]
     Indication: PROPHYLAXIS
     Dosage: 1G TWICE PER DAY
     Route: 042
     Dates: start: 20040501, end: 20040502
  2. METROGYL [Concomitant]
     Indication: PROPHYLAXIS
     Dosage: 100ML TWICE PER DAY
     Route: 042
     Dates: start: 20040501, end: 20040502
  3. DICLOFENAC SODIUM [Concomitant]
  4. RINGER SOLUTION [Concomitant]
  5. DEXTROSE 5% [Concomitant]
  6. DEXTROSE SALINE [Concomitant]
  7. ELECTROLYTES [Concomitant]

REACTIONS (22)
  - ANAPHYLACTIC REACTION [None]
  - BLOOD GLUCOSE FLUCTUATION [None]
  - BRAIN DEATH [None]
  - BURNING SENSATION [None]
  - CARDIAC ARREST [None]
  - CARDIAC FAILURE [None]
  - COAGULOPATHY [None]
  - COMA [None]
  - EYE MOVEMENT DISORDER [None]
  - FACE OEDEMA [None]
  - HYPERPYREXIA [None]
  - HYPOXIC ENCEPHALOPATHY [None]
  - LARYNGEAL OEDEMA [None]
  - LOSS OF CONSCIOUSNESS [None]
  - OXYGEN SATURATION DECREASED [None]
  - PULMONARY EMBOLISM [None]
  - PULSE ABSENT [None]
  - PUPIL FIXED [None]
  - RESPIRATORY DISORDER [None]
  - RESPIRATORY FAILURE [None]
  - RESTLESSNESS [None]
  - TACHYCARDIA [None]
